FAERS Safety Report 4815921-5 (Version None)
Quarter: 2005Q4

REPORT INFORMATION
  Report Type: 
  Country: None (occurrence: None)
  Receive Date: 20051031
  Receipt Date: 20050923
  Transmission Date: 20060501
  Serious: Yes (Life-Threatening, Hospitalization)
  Sender: FDA-Public Use
  Company Number: FI-ABBOTT-05P-055-0312213-00

PATIENT
  Age: 83 Year
  Sex: Male

DRUGS (11)
  1. CLARITHROMYCIN [Suspect]
     Indication: PYLORIC STENOSIS
     Route: 048
     Dates: start: 20050416, end: 20050416
  2. LANSOPRAZOLE [Suspect]
     Indication: PYLORIC STENOSIS
     Route: 048
     Dates: start: 20050416, end: 20050416
  3. AMOXICILLIN [Suspect]
     Indication: PYLORIC STENOSIS
     Route: 048
     Dates: start: 20050416, end: 20050416
  4. ASPIRIN [Concomitant]
     Indication: DRUG USE FOR UNKNOWN INDICATION
  5. EBIXA [Concomitant]
     Indication: DRUG USE FOR UNKNOWN INDICATION
  6. LANSOPRAZOLE [Concomitant]
     Indication: DRUG USE FOR UNKNOWN INDICATION
     Route: 048
  7. DONEPEZIL HYDROCHLORIDE [Concomitant]
     Indication: DRUG USE FOR UNKNOWN INDICATION
     Route: 048
  8. RAMIPRIL [Concomitant]
     Indication: DRUG USE FOR UNKNOWN INDICATION
     Route: 048
  9. SERETIDE [Concomitant]
     Indication: ASTHMA
     Dosage: 1X2 SPRAY DAILY
     Route: 055
  10. HYDROXYZINE HYDROCHLORIDE [Concomitant]
     Indication: DRUG USE FOR UNKNOWN INDICATION
     Route: 048
  11. SLEEP MEDICATION [Concomitant]
     Indication: DRUG USE FOR UNKNOWN INDICATION

REACTIONS (14)
  - ABASIA [None]
  - ANAPHYLACTIC SHOCK [None]
  - ATRIAL FIBRILLATION [None]
  - BLOOD PRESSURE FLUCTUATION [None]
  - DEMENTIA [None]
  - EXTRASYSTOLES [None]
  - GENERALISED ERYTHEMA [None]
  - GENERALISED OEDEMA [None]
  - HEART RATE DECREASED [None]
  - INFECTION [None]
  - ORAL FUNGAL INFECTION [None]
  - PRURITUS [None]
  - PYREXIA [None]
  - RASH GENERALISED [None]
